FAERS Safety Report 19503377 (Version 1)
Quarter: 2021Q3

REPORT INFORMATION
  Report Type: Spontaneous
  Country: US (occurrence: US)
  Receive Date: 20210708
  Receipt Date: 20210708
  Transmission Date: 20211014
  Serious: Yes (Other)
  Sender: FDA-Public Use
  Company Number: US-DRREDDYS-LIT/USA/21/0137422

PATIENT
  Age: 18 Year
  Sex: Male

DRUGS (3)
  1. MERCAPTOPURINE. [Suspect]
     Active Substance: MERCAPTOPURINE
     Dosage: 6MP DOSE IMMEDIATE POST ALLOPURINOL (MG/M2/DAY)
  2. MERCAPTOPURINE. [Suspect]
     Active Substance: MERCAPTOPURINE
     Indication: ACUTE LYMPHOCYTIC LEUKAEMIA
     Dosage: 6MP DOSE IMMEDIATE PRE ALLOPURINOL (MG/M2/DAY)
  3. MERCAPTOPURINE. [Suspect]
     Active Substance: MERCAPTOPURINE
     Dosage: 6MP DOSE IMMEDIATE POST ALLOPURINOL (MG/WEEK)

REACTIONS (1)
  - Hypoglycaemia [Recovered/Resolved]
